FAERS Safety Report 7270103-5 (Version None)
Quarter: 2011Q1

REPORT INFORMATION
  Report Type: 
  Country: None (occurrence: None)
  Receive Date: 20110202
  Receipt Date: 20110126
  Transmission Date: 20110831
  Serious: Yes (Death, Hospitalization)
  Sender: FDA-Public Use
  Company Number: HR-ELI_LILLY_AND_COMPANY-HR201101001136

PATIENT
  Sex: Male
  Weight: 84 kg

DRUGS (10)
  1. CISPLATIN [Suspect]
     Indication: NON-SMALL CELL LUNG CANCER STAGE IV
     Dosage: 150 MG, OTHER
     Dates: start: 20101230
  2. PANTOPRAZOL [Concomitant]
     Dosage: 20 MG, UNK
  3. GEMCITABINE HYDROCHLORIDE [Suspect]
     Indication: NON-SMALL CELL LUNG CANCER STAGE IV
     Dosage: 2500 MG, OTHER
     Dates: start: 20101230
  4. LOSARTIC [Concomitant]
  5. TRANDOL [Concomitant]
  6. NECITUMUMAB (11F8) (LY3012211) [Suspect]
     Indication: NON-SMALL CELL LUNG CANCER STAGE IV
     Dosage: 800 MG, OTHER
     Dates: start: 20101230
  7. ZALDIAR [Concomitant]
     Dosage: UNK, AS NEEDED
  8. TRENTAL [Concomitant]
  9. ISOPTIN /GFR/ [Concomitant]
  10. ATROVENT [Concomitant]

REACTIONS (1)
  - BRAIN OEDEMA [None]
